FAERS Safety Report 18280328 (Version 2)
Quarter: 2020Q3

REPORT INFORMATION
  Report Type: Spontaneous
  Country: CN (occurrence: CN)
  Receive Date: 20200918
  Receipt Date: 20200929
  Transmission Date: 20201103
  Serious: Yes (Other)
  Sender: FDA-Public Use
  Company Number: CN-ASTRAZENECA-2020SF17801

PATIENT
  Age: 64 Year
  Sex: Female
  Weight: 59 kg

DRUGS (2)
  1. IRESSA [Suspect]
     Active Substance: GEFITINIB
     Indication: NON-SMALL CELL LUNG CANCER
     Dosage: 1 TABLET QD
     Route: 048
     Dates: start: 201708, end: 202005
  2. RUIDA [Concomitant]
     Indication: ANTIDEPRESSANT DRUG LEVEL
     Dosage: 1 TABLET QD
     Route: 048
     Dates: start: 201711

REACTIONS (9)
  - Metastases to lymph nodes [Unknown]
  - Drug resistance [Unknown]
  - Metastases to kidney [Unknown]
  - Paronychia [Recovered/Resolved]
  - Rash [Recovered/Resolved]
  - Malignant neoplasm progression [Unknown]
  - Metastases to bone [Recovering/Resolving]
  - Metastases to liver [Recovering/Resolving]
  - Cough [Recovering/Resolving]
